FAERS Safety Report 15275810 (Version 1)
Quarter: 2018Q3

REPORT INFORMATION
  Report Type: Spontaneous
  Country: US (occurrence: US)
  Receive Date: 20180814
  Receipt Date: 20180814
  Transmission Date: 20181010
  Serious: No
  Sender: FDA-Public Use
  Company Number: US-GLENMARK PHARMACEUTICALS-2017GMK028364

PATIENT

DRUGS (1)
  1. ONDANSETRON ORALLY DISINTEGRATING TABLETS [Suspect]
     Active Substance: ONDANSETRON
     Indication: APPETITE DISORDER
     Dosage: UNK
     Route: 065

REACTIONS (6)
  - Eating disorder symptom [Unknown]
  - Product taste abnormal [Unknown]
  - Off label use [Unknown]
  - Dysgeusia [Unknown]
  - Product blister packaging issue [Unknown]
  - Product quality issue [Unknown]
